FAERS Safety Report 5578697-2 (Version None)
Quarter: 2007Q4

REPORT INFORMATION
  Report Type: 
  Country: None (occurrence: None)
  Receive Date: 20071227
  Receipt Date: 20071227
  Transmission Date: 20080405
  Serious: No
  Sender: FDA-Public Use
  Company Number: None

PATIENT
  Sex: Female
  Weight: 49.8957 kg

DRUGS (1)
  1. BONIVA [Suspect]
     Indication: OSTEOPENIA
     Dosage: 150MG 1X MO.

REACTIONS (3)
  - DEPRESSED MOOD [None]
  - FEELING ABNORMAL [None]
  - HEART RATE INCREASED [None]
